FAERS Safety Report 5132523-4 (Version None)
Quarter: 2006Q4

REPORT INFORMATION
  Report Type: 
  Country: None (occurrence: None)
  Receive Date: 20061023
  Receipt Date: 20061009
  Transmission Date: 20070319
  Serious: Yes (Congenital Anomaly)
  Sender: FDA-Public Use
  Company Number: PHRM2006FR02826

PATIENT
  Age: 19 Year
  Sex: Female

DRUGS (3)
  1. EPITOMAX [Suspect]
     Dosage: 300 MG, BID
     Route: 048
  2. URBANYL [Concomitant]
     Dosage: 10 MG, QD
     Route: 048
  3. TRILEPTAL [Suspect]
     Indication: EPILEPSY
     Dosage: 600 MG, BID
     Route: 048

REACTIONS (2)
  - DRUG EXPOSURE DURING PREGNANCY [None]
  - VENTRICULAR SEPTAL DEFECT [None]
